FAERS Safety Report 16927073 (Version 2)
Quarter: 2020Q1

REPORT INFORMATION
  Report Type: Report from Study
  Country: GB (occurrence: GB)
  Receive Date: 20191016
  Receipt Date: 20200318
  Transmission Date: 20200409
  Serious: Yes (Life-Threatening, Other)
  Sender: FDA-Public Use
  Company Number: GB-MYLANLABS-2019M1097009

PATIENT
  Age: 55 Year
  Sex: Female

DRUGS (30)
  1. TRASTUZUMAB. [Suspect]
     Active Substance: TRASTUZUMAB
     Dosage: 525 MILLIGRAM, CYCLE, LOADING DOSE
     Route: 042
     Dates: start: 20170524, end: 20170524
  2. CALCICHEW D3 FORTE [Concomitant]
     Active Substance: CALCIUM\CHOLECALCIFEROL
     Dosage: 2 DOSAGE FORM, QD
     Route: 048
     Dates: start: 20170525
  3. TRASTUZUMAB. [Suspect]
     Active Substance: TRASTUZUMAB
     Indication: HER-2 POSITIVE BREAST CANCER
     Dosage: 240 MILLIGRAM, Q3W
     Route: 042
     Dates: start: 20190427
  4. TRASTUZUMAB. [Suspect]
     Active Substance: TRASTUZUMAB
     Dosage: 400 MILLIGRAM, Q3W, DOSE MODIFIED
     Route: 042
     Dates: start: 20170614, end: 20180425
  5. PACLITAXEL. [Suspect]
     Active Substance: PACLITAXEL
     Dosage: 450 MILLIGRAM, Q3W, DRUG MODIFIED
     Route: 042
     Dates: start: 20170614, end: 20170614
  6. CALCICHEW D3 FORTE [Concomitant]
     Active Substance: CALCIUM\CHOLECALCIFEROL
     Dosage: 1 DOSAGE FORM 0.5 DAY
     Route: 048
     Dates: start: 20170525
  7. CHLORPHENAMINE [Concomitant]
     Active Substance: CHLORPHENIRAMINE MALEATE
     Dosage: 4 MILLIGRAM Q0.25 DAY
     Route: 048
     Dates: start: 20170526
  8. CHLORHEXIDINE GLUCONATE. [Concomitant]
     Active Substance: CHLORHEXIDINE GLUCONATE
     Dosage: 10 MILLILITER Q0.25D
     Route: 048
     Dates: start: 20170525
  9. DOMPERIDONE [Concomitant]
     Active Substance: DOMPERIDONE
     Dosage: 10 MILLIGRAM Q0.33D
     Route: 048
     Dates: start: 20170523
  10. RANITIDINE. [Concomitant]
     Active Substance: RANITIDINE
     Dosage: 150 MILLIGRAM, Q0.5 DAY
     Route: 048
     Dates: start: 20170525, end: 2017
  11. PERTUZUMAB. [Suspect]
     Active Substance: PERTUZUMAB
     Dosage: 420 MILLIGRAM, Q3W, DRUG DISCONTINUED
     Route: 042
     Dates: start: 20170614, end: 20190327
  12. ZOLEDRONIC ACID [Concomitant]
     Active Substance: ZOLEDRONIC ACID
     Dosage: EVERY 3 TO 4 WEEKS
     Route: 042
     Dates: start: 20170525
  13. CETIRIZINE [Concomitant]
     Active Substance: CETIRIZINE HYDROCHLORIDE
     Indication: URTICARIA PAPULAR
     Dosage: 10 MILLIGRAM, QD
     Route: 048
     Dates: start: 20190313
  14. FLUCLOXACILLIN [Concomitant]
     Active Substance: FLUCLOXACILLIN
     Indication: FOLLICULITIS
     Dosage: UNK
     Route: 048
     Dates: start: 20190122, end: 201901
  15. TRASTUZUMAB. [Suspect]
     Active Substance: TRASTUZUMAB
     Dosage: 378 MILLIGRAM, Q3W, LOADING DOSE
     Route: 042
     Dates: start: 20180516, end: 20190327
  16. ERYTHROMYCIN. [Concomitant]
     Active Substance: ERYTHROMYCIN
     Indication: URTICARIA PAPULAR
     Dosage: UNK
     Route: 048
     Dates: start: 20190123, end: 20190202
  17. CHLORPHENAMINE [Concomitant]
     Active Substance: CHLORPHENIRAMINE MALEATE
     Dosage: 16 MILLIGRAM, QD
     Route: 048
     Dates: start: 20170526
  18. CLOBETASOL PROPIONATE. [Concomitant]
     Active Substance: CLOBETASOL PROPIONATE
     Dosage: 0.1 PERCENT, QD
     Route: 061
     Dates: start: 20170210
  19. DOMPERIDONE [Concomitant]
     Active Substance: DOMPERIDONE
     Dosage: 30 MILLIGRAM, QD
     Route: 048
     Dates: start: 20170523
  20. PERTUZUMAB. [Suspect]
     Active Substance: PERTUZUMAB
     Indication: HER-2 POSITIVE BREAST CANCER
     Dosage: LOADING DOSE
     Route: 042
     Dates: start: 20170524, end: 20170524
  21. DOCETAXEL. [Suspect]
     Active Substance: DOCETAXEL
     Indication: HER-2 POSITIVE BREAST CANCER
     Dosage: 130 MILLIGRAM, Q3W, DRUG DISCONTINUED.
     Route: 042
     Dates: start: 20170525, end: 20170525
  22. SANDO K                            /00209301/ [Concomitant]
     Active Substance: POTASSIUM BICARBONATE\POTASSIUM CHLORIDE
     Dosage: 2 DOSAGE FORM, QD
     Route: 048
     Dates: start: 20170525
  23. SANDO K                            /00209301/ [Concomitant]
     Active Substance: POTASSIUM BICARBONATE\POTASSIUM CHLORIDE
     Dosage: 1 DOSAGE FORM 0.5 DAY
     Route: 048
     Dates: start: 20170525
  24. CLOBETASOL PROPIONATE. [Concomitant]
     Active Substance: CLOBETASOL PROPIONATE
     Dosage: 0.05 PERCENT Q0.5D
     Route: 061
     Dates: start: 20170210
  25. LOPERAMIDE [Concomitant]
     Active Substance: LOPERAMIDE
     Dosage: 2 MILLIGRAM, PRN
     Route: 048
     Dates: start: 20170613
  26. CHLORHEXIDINE GLUCONATE. [Concomitant]
     Active Substance: CHLORHEXIDINE GLUCONATE
     Dosage: 40 MILLILITER, QD
     Route: 048
     Dates: start: 20170525
  27. PACLITAXEL. [Suspect]
     Active Substance: PACLITAXEL
     Indication: HER-2 POSITIVE BREAST CANCER
     Dosage: 375 MILLIGRAM, Q3W, DRUG DISCONTINUED
     Route: 042
     Dates: start: 20170705, end: 20170726
  28. PACLITAXEL. [Suspect]
     Active Substance: PACLITAXEL
     Dosage: 300 MILLIGRAM, Q3W, DRUG DISCONTINUED
     Route: 042
     Dates: start: 20170816, end: 20170906
  29. PARACETAMOL [Concomitant]
     Active Substance: ACETAMINOPHEN
     Dosage: 1 INTERNATIONAL UNIT
     Route: 048
     Dates: start: 20170525
  30. RANITIDINE. [Concomitant]
     Active Substance: RANITIDINE
     Dosage: 300 MILLIGRAM, QD
     Route: 048
     Dates: start: 20170525, end: 2017

REACTIONS (3)
  - Subclavian vein thrombosis [Recovered/Resolved]
  - Blepharitis [Not Recovered/Not Resolved]
  - Axillary vein thrombosis [Recovered/Resolved]

NARRATIVE: CASE EVENT DATE: 20170710
